FAERS Safety Report 5022776-5 (Version None)
Quarter: 2006Q2

REPORT INFORMATION
  Report Type: 
  Country: None (occurrence: None)
  Receive Date: 20060609
  Receipt Date: 20060303
  Transmission Date: 20061013
  Serious: Yes (Death, Other)
  Sender: FDA-Public Use
  Company Number: JP-MERCK-0603USA00882

PATIENT
  Age: 88 Year
  Sex: Female

DRUGS (12)
  1. PRIMAXIN [Suspect]
     Indication: PNEUMONIA
     Route: 042
     Dates: start: 20060224, end: 20060226
  2. ISCOTIN [Concomitant]
     Indication: TUBERCULOSIS
     Route: 048
     Dates: start: 20060224, end: 20060313
  3. OMEPRAL [Concomitant]
     Indication: REFLUX OESOPHAGITIS
     Route: 042
     Dates: start: 20060224, end: 20060302
  4. APTECIN [Concomitant]
     Indication: TUBERCULOSIS
     Route: 048
     Dates: start: 20060224, end: 20060313
  5. ETHAMBUTOL HYDROCHLORIDE [Concomitant]
     Indication: TUBERCULOSIS
     Route: 048
     Dates: start: 20060224, end: 20060313
  6. PYDOXAL [Concomitant]
     Indication: PROPHYLAXIS
     Route: 048
     Dates: start: 20060224, end: 20060313
  7. MUCOSTA [Concomitant]
     Indication: PROPHYLAXIS AGAINST GASTROINTESTINAL ULCER
     Route: 048
     Dates: start: 20060224, end: 20060313
  8. AMLODIN [Concomitant]
     Indication: HYPERTENSION
     Route: 048
     Dates: end: 20060313
  9. BLOPRESS [Concomitant]
     Indication: HYPERTENSION
     Route: 048
     Dates: end: 20060313
  10. MAGNESIUM OXIDE [Concomitant]
     Indication: CONSTIPATION
     Route: 048
     Dates: end: 20060313
  11. CLINDAMYCIN PHOSPHATE [Concomitant]
     Indication: PNEUMONIA
     Route: 042
     Dates: start: 20060224, end: 20060306
  12. [COMPOSITION UNSPECIFIED] [Concomitant]
     Indication: FLUID REPLACEMENT
     Route: 042
     Dates: start: 20060224, end: 20060313

REACTIONS (4)
  - CLONIC CONVULSION [None]
  - CONVULSION [None]
  - DISSEMINATED TUBERCULOSIS [None]
  - PNEUMONIA [None]
